FAERS Safety Report 20165920 (Version 6)
Quarter: 2022Q1

REPORT INFORMATION
  Report Type: Spontaneous
  Country: JP (occurrence: JP)
  Receive Date: 20211209
  Receipt Date: 20220125
  Transmission Date: 20220423
  Serious: Yes (Hospitalization, Other)
  Sender: FDA-Public Use
  Company Number: JP-SA-SAC20211207000794

PATIENT
  Age: 2 Year
  Sex: Female

DRUGS (4)
  1. AMBROXOL HYDROCHLORIDE [Suspect]
     Active Substance: AMBROXOL HYDROCHLORIDE
     Indication: Upper respiratory tract infection
     Dosage: 2 ML, Q12H (5 MILLILITER, 2X/DAY (BID))
     Route: 048
  2. AMBROXOL HYDROCHLORIDE [Suspect]
     Active Substance: AMBROXOL HYDROCHLORIDE
     Indication: Cough
  3. ASVERIN (TIPEPIDINE HIBENZATE) [Suspect]
     Active Substance: TIPEPIDINE HIBENZATE
     Indication: Upper respiratory tract infection
     Dosage: 5 ML, Q12H
     Route: 065
  4. XYZAL [Concomitant]
     Active Substance: LEVOCETIRIZINE DIHYDROCHLORIDE
     Indication: Upper respiratory tract infection
     Dosage: 5 ML OF XYZAL SYRUP (CONTAINING 2.5 MG OF LEVOCETIRIZINE HYDROCHLORIDE)
     Route: 065

REACTIONS (5)
  - Depressed level of consciousness [Recovered/Resolved]
  - Toxicity to various agents [Recovered/Resolved]
  - Product communication issue [Recovered/Resolved]
  - Accidental overdose [Recovered/Resolved]
  - Confusional state [Recovered/Resolved]
